FAERS Safety Report 19208372 (Version 1)
Quarter: 2021Q2

REPORT INFORMATION
  Report Type: Spontaneous
  Country: US (occurrence: US)
  Receive Date: 20210504
  Receipt Date: 20210504
  Transmission Date: 20210717
  Serious: No
  Sender: FDA-Public Use
  Company Number: US-009507513-2104USA006590

PATIENT
  Sex: Male
  Weight: 79.82 kg

DRUGS (5)
  1. PRINIVIL [Suspect]
     Active Substance: LISINOPRIL
     Indication: DIABETES MELLITUS
     Dosage: 20 MILLIGRAM, ONCE DAILY; IT HAD BEEN TAKING FOR A FEW YEARS, MAYBE 3?4 YEARS
     Route: 048
  2. VASCEPA [Concomitant]
     Active Substance: ICOSAPENT ETHYL
     Indication: PAIN
     Dosage: 1 MG, 2 CAPSULES DAILY; BEGAN TAKING IT  WHILE AGO, MAYBE A YEAR OR TWO
     Route: 048
  3. LOVASTATIN. [Concomitant]
     Active Substance: LOVASTATIN
     Dosage: 40 MILLIGRAM, ONCE DAILY; THE PATIENT BEGAN TAKING IT A FEW YEARS AGO
  4. METFORMIN [Concomitant]
     Active Substance: METFORMIN HYDROCHLORIDE
     Indication: BLOOD PRESSURE MANAGEMENT
     Dosage: 500 MILLIGRAM, TWICE DAILY; THE PATIENT HAD TAKEN IT AT LEAST 2?3 YEARS
  5. OMEPRAZOLE. [Concomitant]
     Active Substance: OMEPRAZOLE
     Indication: DYSPEPSIA
     Dosage: 40 MILLIGRAM, TWICE DAILY; IT HAD BEEN TAKING FOR A FEW YEARS, MAYBE 3?4 YEARS

REACTIONS (1)
  - Product use in unapproved indication [Unknown]
